FAERS Safety Report 9354829 (Version 1)
Quarter: 2013Q2

REPORT INFORMATION
  Report Type: Spontaneous
  Country: FR (occurrence: FR)
  Receive Date: 20130619
  Receipt Date: 20130619
  Transmission Date: 20140414
  Serious: Yes (Hospitalization)
  Sender: FDA-Public Use
  Company Number: FR-ABBOTT-13X-056-1106176-00

PATIENT
  Age: 73 Year
  Sex: Male

DRUGS (2)
  1. DEPAKINE [Suspect]
     Indication: EPILEPSY
     Dosage: 500 MILLIGRAM(S): DAILY
     Route: 048
  2. SEROPLEX [Suspect]
     Indication: TREMOR
     Dosage: 5 MILLIGRAM(S); DAILY
     Route: 048
     Dates: end: 20130502

REACTIONS (4)
  - Atrioventricular block [Unknown]
  - Bradycardia [Unknown]
  - Malaise [Unknown]
  - Loss of consciousness [Unknown]
